FAERS Safety Report 10493844 (Version 1)
Quarter: 2014Q4

REPORT INFORMATION
  Report Type: Spontaneous
  Country: DE (occurrence: DE)
  Receive Date: 20141003
  Receipt Date: 20141003
  Transmission Date: 20150528
  Serious: Yes (Other)
  Sender: FDA-Public Use
  Company Number: DE-ROCHE-1468919

PATIENT
  Age: 69 Year
  Sex: Female

DRUGS (7)
  1. PREDNISOLONE. [Concomitant]
     Active Substance: PREDNISOLONE
     Route: 065
  2. RITUXIMAB [Suspect]
     Active Substance: RITUXIMAB
     Dosage: SINGLE DOSE
     Route: 050
  3. PREDNISOLONE EYE DROPS [Concomitant]
     Route: 065
  4. METHOTREXATE [Suspect]
     Active Substance: METHOTREXATE
     Indication: B-CELL LYMPHOMA
     Route: 065
  5. PREDNISOLONE EYE DROPS [Concomitant]
     Route: 065
  6. RITUXIMAB [Suspect]
     Active Substance: RITUXIMAB
     Indication: B-CELL LYMPHOMA
     Dosage: SINGLE DOSE
     Route: 050
  7. PREDNISOLONE EYE DROPS [Concomitant]
     Route: 065

REACTIONS (1)
  - Intraocular pressure increased [Recovering/Resolving]
